FAERS Safety Report 4683969-X (Version None)
Quarter: 2005Q2

REPORT INFORMATION
  Report Type: 
  Country: None (occurrence: None)
  Receive Date: 20050602
  Receipt Date: 20050207
  Transmission Date: 20051028
  Serious: No
  Sender: FDA-Public Use
  Company Number: 200420593BWH

PATIENT
  Sex: Male

DRUGS (8)
  1. LEVITRA [Suspect]
     Dosage: ORAL
     Route: 048
     Dates: start: 20040918
  2. HYDROCHLOROTHIAZIDE [Concomitant]
  3. ALTACE [Concomitant]
  4. LIPITOR [Concomitant]
  5. METOPROLOL [Concomitant]
  6. MULTI-VITAMIN [Concomitant]
  7. UHEMABARK (HERB) [Concomitant]
  8. FLOMAX [Concomitant]

REACTIONS (1)
  - DRUG INEFFECTIVE [None]
